FAERS Safety Report 15030241 (Version 3)
Quarter: 2023Q2

REPORT INFORMATION
  Report Type: Spontaneous
  Country: JP (occurrence: JP)
  Receive Date: 20180619
  Receipt Date: 20230428
  Transmission Date: 20230722
  Serious: Yes (Hospitalization)
  Sender: FDA-Public Use
  Company Number: JP-PFIZER INC-2018235937

PATIENT
  Age: 53 Year
  Sex: Male

DRUGS (11)
  1. VFEND [Interacting]
     Active Substance: VORICONAZOLE
     Indication: Bronchopulmonary aspergillosis
     Dosage: 100 MG, 2X/DAY
     Route: 048
     Dates: start: 20171014, end: 20180607
  2. TRAMCET [Interacting]
     Active Substance: ACETAMINOPHEN\TRAMADOL
     Indication: Pain
     Dosage: 4 TABLETS, UNK
     Route: 048
     Dates: start: 201801, end: 20180607
  3. AMBROXOL [Concomitant]
     Active Substance: AMBROXOL
     Dosage: 45 MG, DAILY
  4. CARBOCYSTEINE [Concomitant]
     Active Substance: CARBOCYSTEINE
     Dosage: 1500 MG, DAILY
  5. FD+C RED NO. 3 [Concomitant]
     Active Substance: FD+C RED NO. 3
     Indication: Pseudomonas infection
     Dosage: 400 MG, DAILY
  6. RABEPRAZOLE [Concomitant]
     Active Substance: RABEPRAZOLE
     Dosage: 1 TABLET, UNK
  7. METHYLCOBALAMIN [Concomitant]
     Active Substance: METHYLCOBALAMIN
     Dosage: 1500 MG, DAILY
  8. DIFLORASONE DIACETATE [Concomitant]
     Active Substance: DIFLORASONE DIACETATE
     Dosage: 60 MG, DAILY
  9. REBAMIPIDE [Concomitant]
     Active Substance: REBAMIPIDE
     Dosage: 3 TABLETS, UNK
  10. SPIRONOLACTONE [Concomitant]
     Active Substance: SPIRONOLACTONE
     Dosage: 125 MG, DAILY
  11. CODEINE PHOSPHATE [Concomitant]
     Active Substance: CODEINE PHOSPHATE
     Dosage: UNK

REACTIONS (5)
  - Drug interaction [Unknown]
  - Drug-induced liver injury [Unknown]
  - Hepatic function abnormal [Recovered/Resolved]
  - Transaminases increased [Recovered/Resolved]
  - Malaise [Unknown]

NARRATIVE: CASE EVENT DATE: 20180607
